FAERS Safety Report 25424668 (Version 2)
Quarter: 2025Q2

REPORT INFORMATION
  Report Type: Spontaneous
  Country: FR (occurrence: FR)
  Receive Date: 20250611
  Receipt Date: 20250620
  Transmission Date: 20250717
  Serious: Yes (Other)
  Sender: SANOFI AVENTIS
  Company Number: None

PATIENT
  Age: 47 Year
  Sex: Male
  Weight: 86 kg

DRUGS (2)
  1. METHADONE [Interacting]
     Active Substance: METHADONE HYDROCHLORIDE
     Indication: Drug dependence
     Dosage: 90 MG, QD
     Route: 048
     Dates: start: 2023
  2. RIFAMPIN [Interacting]
     Active Substance: RIFAMPIN
     Indication: Infection
     Dosage: 900 MG, QD
     Route: 048
     Dates: start: 20250521, end: 20250526

REACTIONS (2)
  - Drug interaction [Recovered/Resolved]
  - Withdrawal syndrome [Recovered/Resolved]

NARRATIVE: CASE EVENT DATE: 20250521
